FAERS Safety Report 10997804 (Version 1)
Quarter: 2015Q2

REPORT INFORMATION
  Report Type: Spontaneous
  Country: US (occurrence: US)
  Receive Date: 20150408
  Receipt Date: 20150408
  Transmission Date: 20150821
  Serious: Yes (Hospitalization)
  Sender: FDA-Public Use
  Company Number: US-PFIZER INC-2015119424

PATIENT
  Age: 62 Year
  Sex: Male
  Weight: 93 kg

DRUGS (1)
  1. VFEND [Suspect]
     Active Substance: VORICONAZOLE
     Indication: PULMONARY MYCOSIS
     Dosage: 200 MG, 2X/DAY
     Dates: start: 201412, end: 20150327

REACTIONS (2)
  - Pharyngitis [Not Recovered/Not Resolved]
  - Ear infection bacterial [Not Recovered/Not Resolved]

NARRATIVE: CASE EVENT DATE: 201503
